FAERS Safety Report 10443527 (Version 3)
Quarter: 2014Q4

REPORT INFORMATION
  Report Type: Spontaneous
  Country: US (occurrence: US)
  Receive Date: 20140910
  Receipt Date: 20141215
  Transmission Date: 20150528
  Serious: Yes (Other)
  Sender: FDA-Public Use
  Company Number: US-BIOGENIDEC-2014BI091691

PATIENT
  Sex: Female

DRUGS (2)
  1. AVONEX [Suspect]
     Active Substance: INTERFERON BETA-1A
     Indication: MULTIPLE SCLEROSIS
     Route: 030
     Dates: start: 2003
  2. AVONEX [Suspect]
     Active Substance: INTERFERON BETA-1A
     Indication: MULTIPLE SCLEROSIS
     Route: 030
     Dates: start: 2004, end: 2005

REACTIONS (12)
  - Hypersomnia [Recovered/Resolved]
  - Incoherent [Recovered/Resolved]
  - Chills [Recovered/Resolved]
  - Thrombosis [Unknown]
  - Tremor [Recovered/Resolved]
  - Herpes zoster [Recovered/Resolved]
  - Stress [Unknown]
  - Coma [Recovered/Resolved]
  - Hyperthermia [Recovered/Resolved]
  - Memory impairment [Unknown]
  - Pruritus [Unknown]
  - Dermatitis allergic [Not Recovered/Not Resolved]

NARRATIVE: CASE EVENT DATE: 2003
